FAERS Safety Report 18721730 (Version 1)
Quarter: 2021Q1

REPORT INFORMATION
  Report Type: Spontaneous
  Country: US (occurrence: US)
  Receive Date: 20210110
  Receipt Date: 20210110
  Transmission Date: 20210419
  Serious: Yes (Death, Hospitalization, Other)
  Sender: FDA-Public Use
  Company Number: US-SHILPA MEDICARE LIMITED-SML-US-2021-00016

PATIENT
  Age: 71 Year
  Sex: Male

DRUGS (1)
  1. IMATINIB, UNKNOWN [Suspect]
     Active Substance: IMATINIB
     Indication: CHRONIC MYELOID LEUKAEMIA
     Route: 065

REACTIONS (5)
  - Diarrhoea [Unknown]
  - Pneumocystis jirovecii pneumonia [Fatal]
  - Respiratory distress [Fatal]
  - Respiratory failure [Recovering/Resolving]
  - Septic shock [Fatal]
